FAERS Safety Report 23551659 (Version 4)
Quarter: 2024Q1

REPORT INFORMATION
  Report Type: Spontaneous
  Country: SA (occurrence: SA)
  Receive Date: 20240222
  Receipt Date: 20240328
  Transmission Date: 20240410
  Serious: Yes (Hospitalization)
  Sender: FDA-Public Use
  Company Number: SA-AMAROX PHARMA-HET2024SA00505

PATIENT
  Age: 42 Year
  Sex: Female
  Weight: 80 kg

DRUGS (2)
  1. PANTOPRAZOLE [Suspect]
     Active Substance: PANTOPRAZOLE
     Indication: Gastrooesophageal reflux disease
     Dosage: 40 MILLIGRAM, QD (FOR UPTO 8 WEEKS)
     Route: 042
     Dates: start: 20240210, end: 20240210
  2. BUTYLSCOPOLAMINE BROMIDE [Concomitant]
     Active Substance: BUTYLSCOPOLAMINE BROMIDE
     Indication: Product used for unknown indication
     Dosage: ONLY 10 MINUTES BEFORE USING THE PANTROX 40 MG
     Route: 030

REACTIONS (2)
  - Anaphylactic shock [Recovered/Resolved]
  - Product preparation error [Unknown]

NARRATIVE: CASE EVENT DATE: 20240210
